FAERS Safety Report 7053872-9 (Version None)
Quarter: 2010Q4

REPORT INFORMATION
  Report Type: 
  Country: None (occurrence: None)
  Receive Date: 20101020
  Receipt Date: 20101018
  Transmission Date: 20110411
  Serious: Yes (Hospitalization, Other)
  Sender: FDA-Public Use
  Company Number: FR-BRISTOL-MYERS SQUIBB COMPANY-15338106

PATIENT
  Age: 70 Year
  Sex: Male

DRUGS (1)
  1. ORENCIA [Suspect]
     Indication: RHEUMATOID ARTHRITIS
     Dosage: ON AN UNSPECIFIED DATE 1PER2MONTH
     Route: 042
     Dates: start: 20090201

REACTIONS (4)
  - INTERSTITIAL LUNG DISEASE [None]
  - PERICARDITIS [None]
  - PLEURAL EFFUSION [None]
  - SIGMOIDITIS [None]
